FAERS Safety Report 6240085-3 (Version None)
Quarter: 2009Q2

REPORT INFORMATION
  Report Type: 
  Country: None (occurrence: None)
  Receive Date: 20090618
  Receipt Date: 20090618
  Transmission Date: 20091009
  Serious: Yes (Disabling)
  Sender: FDA-Public Use
  Company Number: None

PATIENT
  Age: 51 Year
  Sex: Male
  Weight: 99.7913 kg

DRUGS (2)
  1. ZICAM COLD REMEDY NASAL GEL MAXXIM [Suspect]
     Indication: NASOPHARYNGITIS
     Dosage: AS DIRECTED ON INSTRUCTIONS AS DIRECTED NASAL
     Route: 045
     Dates: start: 20090501, end: 20090508
  2. ZICAM COLD REMEDY NASAL GEL MAXXIM [Suspect]
     Indication: SINUSITIS
     Dosage: AS DIRECTED ON INSTRUCTIONS AS DIRECTED NASAL
     Route: 045
     Dates: start: 20090501, end: 20090508

REACTIONS (1)
  - HYPOSMIA [None]
